FAERS Safety Report 24304247 (Version 2)
Quarter: 2024Q3

REPORT INFORMATION
  Report Type: Report from Study
  Country: CO (occurrence: CO)
  Receive Date: 20240910
  Receipt Date: 20240913
  Transmission Date: 20241017
  Serious: Yes (Other)
  Sender: ABBVIE
  Company Number: CO-JNJFOC-20240902735

PATIENT
  Age: 82 Year
  Sex: Male
  Weight: 70 kg

DRUGS (1)
  1. IMBRUVICA [Suspect]
     Active Substance: IBRUTINIB
     Indication: Chronic lymphocytic leukaemia
     Route: 048
     Dates: start: 2014, end: 202403

REACTIONS (6)
  - Chronic lymphocytic leukaemia [Not Recovered/Not Resolved]
  - Off label use [Unknown]
  - Mouth swelling [Not Recovered/Not Resolved]
  - Product dose omission issue [Unknown]
  - Swelling face [Not Recovered/Not Resolved]
  - Product prescribing error [Unknown]

NARRATIVE: CASE EVENT DATE: 20240501
